FAERS Safety Report 9984695 (Version 1)
Quarter: 2014Q1

REPORT INFORMATION
  Report Type: Report from Study
  Country: US (occurrence: US)
  Receive Date: 20140304
  Receipt Date: 20140304
  Transmission Date: 20141002
  Serious: No
  Sender: FDA-Public Use
  Company Number: US-ABBVIE-13P-163-1076685-00

PATIENT
  Age: 63 Year
  Sex: Female

DRUGS (10)
  1. HUMIRA [Suspect]
     Indication: CROHN^S DISEASE
     Dates: start: 20130218
  2. PENTASA [Concomitant]
     Indication: CROHN^S DISEASE
  3. TOPROL [Concomitant]
     Indication: CARDIOVASCULAR EVENT PROPHYLAXIS
  4. CALCIUM PLUS VITAMIN D [Concomitant]
     Indication: PRODUCT USED FOR UNKNOWN INDICATION
  5. ESTROVEN [Concomitant]
     Indication: HOT FLUSH
     Dosage: DAILY
  6. BENADRYL [Concomitant]
     Indication: INSOMNIA
     Dosage: AT BEDTIME
  7. MULTIVITAMIN [Concomitant]
     Indication: PRODUCT USED FOR UNKNOWN INDICATION
     Dosage: DAILY
  8. VITAMIN C [Concomitant]
     Indication: PRODUCT USED FOR UNKNOWN INDICATION
  9. IRON [Concomitant]
     Indication: ANAEMIA
  10. B-12 [Concomitant]
     Indication: PRODUCT USED FOR UNKNOWN INDICATION
     Dosage: MONTHLY
     Route: 050

REACTIONS (2)
  - Blood blister [Not Recovered/Not Resolved]
  - Injury [Not Recovered/Not Resolved]
